FAERS Safety Report 7429976-5 (Version None)
Quarter: 2011Q2

REPORT INFORMATION
  Report Type: 
  Country: None (occurrence: None)
  Receive Date: 20110421
  Receipt Date: 20110414
  Transmission Date: 20111010
  Serious: Yes (Hospitalization)
  Sender: FDA-Public Use
  Company Number: JP-PFIZER INC-2011071212

PATIENT
  Age: 69 Year
  Sex: Female
  Weight: 42 kg

DRUGS (12)
  1. PARIET [Concomitant]
     Dosage: 10 MG, 1X/DAY
     Route: 048
  2. AMLODIN [Concomitant]
     Dosage: 5 MG, 1X/DAY
     Route: 048
  3. OLMETEC [Concomitant]
     Dosage: 20 MG, 1X/DAY
     Route: 048
  4. LYRICA [Suspect]
     Indication: ARTHRALGIA
     Dosage: 75 MG/DAY, EVERY FOURTH DAY
     Route: 048
     Dates: start: 20110314, end: 20110314
  5. CEPHADOL [Concomitant]
     Dosage: 25 MG, 2X/DAY
     Route: 048
  6. CALCIUM CARBONATE [Concomitant]
     Dosage: 0.5 G, 3X/DAY
     Route: 048
  7. DEPAS [Concomitant]
     Dosage: 0.5 MG, 1X/DAY
     Route: 048
  8. NIVADIL [Concomitant]
     Dosage: 8 MG, 2X/DAY
     Route: 048
  9. METHYCOBAL [Concomitant]
     Dosage: 500 UG, 3X/DAY
     Route: 048
  10. THYRADIN S [Concomitant]
     Dosage: 50 UG, 1X/DAY
     Route: 048
  11. ROCALTROL [Concomitant]
     Dosage: 0.25 UG, 1X/DAY
     Route: 048
  12. LOXONIN [Concomitant]
     Dosage: 50 MG/DAY
     Route: 048

REACTIONS (3)
  - ALTERED STATE OF CONSCIOUSNESS [None]
  - VERTIGO [None]
  - TREMOR [None]
